FAERS Safety Report 13089409 (Version 3)
Quarter: 2017Q2

REPORT INFORMATION
  Report Type: Spontaneous
  Country: US (occurrence: US)
  Receive Date: 20170105
  Receipt Date: 20170501
  Transmission Date: 20170830
  Serious: No
  Sender: FDA-Public Use
  Company Number: US-PFIZER INC-2016601082

PATIENT
  Age: 71 Year
  Sex: Male

DRUGS (1)
  1. SUTENT [Suspect]
     Active Substance: SUNITINIB MALATE
     Indication: CHRONIC KIDNEY DISEASE
     Dosage: 50 MG, CYCLIC (1 CAPSULE EVERY DAY FOLLOWED BY 1 WEEK OF REST)
     Route: 048
     Dates: start: 201612

REACTIONS (6)
  - White blood cell count decreased [Unknown]
  - Paraesthesia [Unknown]
  - Hyperaesthesia [Unknown]
  - Back pain [Unknown]
  - Abdominal pain [Unknown]
  - Dysgeusia [Unknown]
